FAERS Safety Report 24265758 (Version 2)
Quarter: 2024Q3

REPORT INFORMATION
  Report Type: Report from Study
  Country: US (occurrence: US)
  Receive Date: 20240830
  Receipt Date: 20240927
  Transmission Date: 20241017
  Serious: Yes (Hospitalization, Other)
  Sender: ABBVIE
  Company Number: US-ABBVIE-5893568

PATIENT
  Age: 53 Year
  Sex: Female

DRUGS (1)
  1. HUMIRA [Suspect]
     Active Substance: ADALIMUMAB
     Indication: Crohn^s disease
     Route: 058
     Dates: start: 20140101

REACTIONS (5)
  - Breast cancer [Not Recovered/Not Resolved]
  - Breast cellulitis [Unknown]
  - Hospitalisation [Recovered/Resolved]
  - Nasopharyngitis [Recovering/Resolving]
  - Mastitis [Unknown]

NARRATIVE: CASE EVENT DATE: 20240801
